FAERS Safety Report 8128902-3 (Version None)
Quarter: 2012Q1

REPORT INFORMATION
  Report Type: 
  Country: None (occurrence: None)
  Receive Date: 20120210
  Receipt Date: 20110504
  Transmission Date: 20120608
  Serious: No
  Sender: FDA-Public Use
  Company Number: US-BRISTOL-MYERS SQUIBB COMPANY-15718562

PATIENT
  Age: 50 Year
  Sex: Female
  Weight: 92 kg

DRUGS (14)
  1. LUNESTA [Concomitant]
  2. POTASSIUM [Concomitant]
  3. PREDNISONE TAB [Concomitant]
     Indication: PREMEDICATION
  4. CALCIUM [Concomitant]
  5. FOLIC ACID [Concomitant]
  6. PRAVASTATIN SODIUM [Concomitant]
  7. PERCOCET [Concomitant]
  8. ONDANSETRON HCL [Concomitant]
  9. OXYCONTIN [Concomitant]
  10. ORENCIA [Suspect]
     Dosage: LAST DOSE:29APR2011
     Dates: start: 20101001
  11. NEXIUM [Concomitant]
  12. VITAMIN D [Concomitant]
  13. METHOTREXATE [Concomitant]
  14. CYMBALTA [Concomitant]

REACTIONS (8)
  - NAUSEA [None]
  - FEELING JITTERY [None]
  - ADVERSE EVENT [None]
  - VOMITING [None]
  - MUSCLE STRAIN [None]
  - SOMNOLENCE [None]
  - FATIGUE [None]
  - HEADACHE [None]
